FAERS Safety Report 4416012-8 (Version None)
Quarter: 2004Q3

REPORT INFORMATION
  Report Type: 
  Country: None (occurrence: None)
  Receive Date: 20040802
  Receipt Date: 20040721
  Transmission Date: 20050211
  Serious: No
  Sender: FDA-Public Use
  Company Number: 04H-163-0267958-00

PATIENT
  Age: 65 Year
  Sex: Male

DRUGS (4)
  1. HEPARIN SODIUM [Suspect]
     Indication: ANTICOAGULANT THERAPY
     Dosage: SEE IMAGE
     Route: 042
  2. METHYLPREDNISOLONE [Concomitant]
  3. PREDNISOLONE [Concomitant]
  4. CYCLOPHOSPHAMIDE [Concomitant]

REACTIONS (4)
  - DEEP VEIN THROMBOSIS [None]
  - HEPARIN-INDUCED THROMBOCYTOPENIA [None]
  - MEDICAL DEVICE COMPLICATION [None]
  - OEDEMA PERIPHERAL [None]
